FAERS Safety Report 5653285-8 (Version None)
Quarter: 2008Q1

REPORT INFORMATION
  Report Type: 
  Country: None (occurrence: None)
  Receive Date: 20080306
  Receipt Date: 20080226
  Transmission Date: 20080703
  Serious: Yes (Hospitalization)
  Sender: FDA-Public Use
  Company Number: FR-WYE-G01137108

PATIENT
  Sex: Male

DRUGS (11)
  1. TAZOCILLINE [Suspect]
     Indication: BACTERIAL SEPSIS
     Route: 042
     Dates: start: 20071228, end: 20080101
  2. TRANXENE [Concomitant]
     Dosage: UNKNOWN
     Dates: end: 20080102
  3. ACETAMINOPHEN [Concomitant]
     Dosage: UNKNOWN
     Dates: start: 20071231
  4. CONTRAMAL [Concomitant]
     Dosage: UNKNOWN
  5. PERFALGAN [Concomitant]
     Indication: ANALGESIA
     Dosage: UNKNOWN
     Dates: start: 20080103
  6. ACUPAN [Concomitant]
     Indication: ANALGESIA
     Dosage: UNKNOWN
     Dates: start: 20080103
  7. TRAMADOL HCL [Concomitant]
     Indication: ANALGESIA
     Dosage: UNKNOWN
     Dates: start: 20080103
  8. MORPHINE [Suspect]
     Dosage: UNKNOWN
     Dates: end: 20071229
  9. MORPHINE [Suspect]
     Dosage: UNKNOWN
     Dates: start: 20071231, end: 20080103
  10. ATARAX [Concomitant]
     Dosage: UNKNOWN
     Dates: start: 20080103, end: 20080101
  11. ATARAX [Concomitant]
     Dosage: DOSE REDUCED; 50 MG 1 TIME DAILY
     Dates: start: 20080101

REACTIONS (4)
  - BRADYPHRENIA [None]
  - COMMUNICATION DISORDER [None]
  - CONFUSIONAL STATE [None]
  - DAYDREAMING [None]
